FAERS Safety Report 16008812 (Version 1)
Quarter: 2019Q1

REPORT INFORMATION
  Report Type: Spontaneous
  Country: US (occurrence: US)
  Receive Date: 20190225
  Receipt Date: 20190225
  Transmission Date: 20190418
  Serious: No
  Sender: FDA-Public Use
  Company Number: US-CELGENEUS-USA-20190205363

PATIENT
  Age: 71 Year
  Sex: Female

DRUGS (2)
  1. REVLIMID [Suspect]
     Active Substance: LENALIDOMIDE
     Indication: PLASMA CELL MYELOMA
     Dosage: 25 MILLIGRAM
     Route: 048
     Dates: start: 20181208
  2. CEPHALEXIN. [Concomitant]
     Active Substance: CEPHALEXIN
     Indication: PRODUCT USED FOR UNKNOWN INDICATION
     Route: 065

REACTIONS (12)
  - Blood potassium decreased [Unknown]
  - Feeling abnormal [Unknown]
  - Nausea [Unknown]
  - Vision blurred [Unknown]
  - Fatigue [Unknown]
  - Malnutrition [Unknown]
  - Fall [Unknown]
  - Balance disorder [Unknown]
  - Decreased appetite [Unknown]
  - Ageusia [Unknown]
  - Dysgeusia [Unknown]
  - Blood sodium decreased [Unknown]

NARRATIVE: CASE EVENT DATE: 201812
